FAERS Safety Report 22638750 (Version 2)
Quarter: 2023Q2

REPORT INFORMATION
  Report Type: Spontaneous
  Country: CN (occurrence: CN)
  Receive Date: 20230626
  Receipt Date: 20230629
  Transmission Date: 20230721
  Serious: Yes (Hospitalization, Other)
  Sender: FDA-Public Use
  Company Number: CN-BEH-2023160097

PATIENT
  Age: 66 Year
  Sex: Female

DRUGS (8)
  1. ALBURX [Suspect]
     Active Substance: ALBUMIN HUMAN
     Indication: Hypoproteinaemia
     Dosage: UNK
     Route: 065
     Dates: start: 20230322, end: 20230327
  2. ALBURX [Suspect]
     Active Substance: ALBUMIN HUMAN
     Dosage: 50 MILLILITER, OD
     Route: 041
     Dates: start: 20230408, end: 20230419
  3. PROTEIN HYDROLYSATE [Suspect]
     Active Substance: PROTEIN HYDROLYSATE
     Indication: Hypoproteinaemia
     Dosage: 30 MILLILITER, TID
     Route: 048
     Dates: start: 20230327, end: 20230420
  4. PIPERACILLIN SODIUM\TAZOBACTAM SODIUM [Concomitant]
     Active Substance: PIPERACILLIN SODIUM\TAZOBACTAM SODIUM
     Indication: Pneumonitis
     Dosage: 4.5 GRAM, TID
     Route: 041
     Dates: start: 20230410, end: 20230416
  5. METHYLPREDNISOLONE SODIUM SUCCINATE [Concomitant]
     Active Substance: METHYLPREDNISOLONE SODIUM SUCCINATE
     Indication: Pneumonitis
     Dosage: 40 MILLIGRAM, QD
     Route: 041
     Dates: start: 20230410, end: 20230417
  6. AMBROXOL HYDROCHLORIDE [Concomitant]
     Active Substance: AMBROXOL HYDROCHLORIDE
     Indication: Pneumonitis
     Dosage: 15 MILLIGRAM, BID
     Route: 041
     Dates: start: 20230321, end: 20230425
  7. MOXIFLOXACIN HYDROCHLORIDE [Concomitant]
     Active Substance: MOXIFLOXACIN HYDROCHLORIDE
     Indication: Pneumonitis
     Dosage: 0.4 GRAM, QD
     Route: 041
     Dates: start: 20230408, end: 20230410
  8. CEFOPERAZONE SODIUM\SULBACTAM [Concomitant]
     Active Substance: CEFOPERAZONE SODIUM\SULBACTAM
     Indication: Pneumonitis
     Dosage: UNK
     Route: 065
     Dates: start: 20230417

REACTIONS (6)
  - Azotaemia [Recovering/Resolving]
  - Aspiration [Unknown]
  - Cough [Unknown]
  - Productive cough [Unknown]
  - Pyrexia [Unknown]
  - Inflammatory marker increased [Unknown]

NARRATIVE: CASE EVENT DATE: 20230408
